FAERS Safety Report 22932928 (Version 5)
Quarter: 2024Q1

REPORT INFORMATION
  Report Type: Spontaneous
  Country: US (occurrence: US)
  Receive Date: 20230912
  Receipt Date: 20240216
  Transmission Date: 20240410
  Serious: No
  Sender: FDA-Public Use
  Company Number: US-PHARMING-PHAUS2023000655

PATIENT

DRUGS (9)
  1. RUCONEST [Suspect]
     Active Substance: CONESTAT ALFA
     Indication: Hereditary angioedema
     Dosage: 3700 IU, TWICE WEEKLY
     Route: 042
     Dates: start: 202007
  2. RUCONEST [Suspect]
     Active Substance: CONESTAT ALFA
     Dosage: 3700 IU, TWICE WEEKLY
     Route: 042
     Dates: start: 202007
  3. RUCONEST [Suspect]
     Active Substance: CONESTAT ALFA
     Dosage: 3700 IU, TWICE WEEKLY
     Route: 042
     Dates: start: 202007
  4. RUCONEST [Suspect]
     Active Substance: CONESTAT ALFA
     Dosage: 3700 IU, TWICE WEEKLY
     Route: 042
     Dates: start: 202007
  5. RUCONEST [Suspect]
     Active Substance: CONESTAT ALFA
     Dosage: 3700 IU, TWICE WEEKLY
     Route: 042
     Dates: start: 202007
  6. TAKHZYRO [Concomitant]
     Active Substance: LANADELUMAB-FLYO
     Indication: Product used for unknown indication
  7. DUPIXENT [Concomitant]
     Active Substance: DUPILUMAB
     Indication: Asthma
  8. HEPARIN [Concomitant]
     Active Substance: HEPARIN SODIUM
     Indication: Product used for unknown indication
  9. LIDOCAINE\PRILOCAINE [Concomitant]
     Active Substance: LIDOCAINE\PRILOCAINE
     Indication: Product used for unknown indication

REACTIONS (2)
  - Condition aggravated [Unknown]
  - Intentional product use issue [Unknown]
